FAERS Safety Report 22243437 (Version 1)
Quarter: 2023Q2

REPORT INFORMATION
  Report Type: Spontaneous
  Country: JP (occurrence: JP)
  Receive Date: 20230424
  Receipt Date: 20230424
  Transmission Date: 20230722
  Serious: Yes (Death, Other)
  Sender: FDA-Public Use
  Company Number: JP-STRIDES ARCOLAB LIMITED-2023SP005857

PATIENT
  Age: 71 Year
  Sex: Male

DRUGS (9)
  1. OXYCODONE [Suspect]
     Active Substance: OXYCODONE
     Indication: Cancer pain
     Dosage: 2.5 MILLIGRAM (PER DAY)
     Route: 048
  2. OXYCODONE [Suspect]
     Active Substance: OXYCODONE
     Dosage: 5 MILLIGRAM (PER DAY)
     Route: 048
  3. OXYCODONE [Suspect]
     Active Substance: OXYCODONE
     Dosage: 10 MILLIGRAM (PER DAY)
     Route: 048
  4. MORPHINE SULFATE [Suspect]
     Active Substance: MORPHINE SULFATE
     Indication: Cancer pain
     Dosage: UNK
     Route: 065
  5. SORAFENIB [Suspect]
     Active Substance: SORAFENIB
     Indication: Hepatocellular carcinoma
     Dosage: 800 MILLIGRAM, CYCLICAL (PER DAY) (8 CYCLE)(THE MAN ABANDONED SORAFENIB THERAPY)
     Route: 065
  6. FENTANYL [Suspect]
     Active Substance: FENTANYL
     Indication: Cancer pain
     Dosage: 2.1 MILLIGRAM (PER DAY) (DERMAL)
     Route: 050
  7. FENTANYL [Suspect]
     Active Substance: FENTANYL
     Dosage: 4.2 MILLIGRAM (PER DAY) (DERMAL)
     Route: 050
  8. FENTANYL [Suspect]
     Active Substance: FENTANYL
     Dosage: 6.3 MILLIGRAM (PER DAY) (DERMAL)
     Route: 050
  9. BUPIVACAINE [Suspect]
     Active Substance: BUPIVACAINE
     Indication: Cancer pain
     Dosage: UNK
     Route: 065

REACTIONS (2)
  - Death [Fatal]
  - Drug ineffective [Unknown]
